FAERS Safety Report 23341016 (Version 1)
Quarter: 2023Q4

REPORT INFORMATION
  Report Type: Spontaneous
  Country: PL (occurrence: PL)
  Receive Date: 20231227
  Receipt Date: 20231227
  Transmission Date: 20240109
  Serious: Yes (Hospitalization, Other)
  Sender: FDA-Public Use
  Company Number: PL-PFIZER INC-PV202200005642

PATIENT
  Age: 71 Year
  Sex: Female

DRUGS (12)
  1. CYCLOSPORINE [Suspect]
     Active Substance: CYCLOSPORINE
     Indication: Dermatomyositis
     Dosage: 200 MILLIGRAM, ONCE A DAY (200 MG, DAILY)
     Route: 065
     Dates: start: 2020
  2. LEFLUNOMIDE [Suspect]
     Active Substance: LEFLUNOMIDE
     Indication: Dermatomyositis
     Dosage: 20 MILLIGRAM, ONCE A DAY (20 MG, DAILY)
     Route: 065
  3. AZATHIOPRINE [Suspect]
     Active Substance: AZATHIOPRINE
     Indication: Dermatomyositis
     Dosage: 100 MILLIGRAM, ONCE A DAY (DOSE FURTHER MODIFIED
     Route: 065
     Dates: start: 2017
  4. CHLOROQUINE [Suspect]
     Active Substance: CHLOROQUINE
     Indication: Dermatomyositis
     Dosage: 250 MILLIGRAM, ONCE A DAY (DAILY)
     Route: 065
  5. FLUDROCORTISONE [Suspect]
     Active Substance: FLUDROCORTISONE
     Indication: Product used for unknown indication
     Dosage: 100 MICROGRAM, ONCE A DAY (100 UG, DAILY)
     Route: 065
     Dates: start: 2020
  6. MYCOPHENOLATE MOFETIL [Suspect]
     Active Substance: MYCOPHENOLATE MOFETIL
     Indication: Dermatomyositis
     Dosage: 1 GRAM, ONCE A DAY (1 G, DAILY)
     Route: 065
  7. METHYLPREDNISOLONE SODIUM SUCCINATE [Suspect]
     Active Substance: METHYLPREDNISOLONE SODIUM SUCCINATE
     Indication: Dermatomyositis
     Dosage: 250 MG FOR 3 CONSECUTIVE DAYS
     Route: 042
     Dates: start: 2020
  8. METHYLPREDNISOLONE [Suspect]
     Active Substance: METHYLPREDNISOLONE
     Indication: Dermatomyositis
     Dosage: 8 MILLIGRAM, ONCE A DAY (8 MG, DAILY)
     Route: 048
     Dates: start: 2017
  9. METHYLPREDNISOLONE [Suspect]
     Active Substance: METHYLPREDNISOLONE
     Dosage: 250 MILLIGRAM, ONCE A DAY (PULSE TREATMENT, FOR 3 CONSECUTIVE DAYS)
     Route: 042
  10. PREDNISOLONE [Suspect]
     Active Substance: PREDNISOLONE
     Indication: Dermatomyositis
     Dosage: 60 MILLIGRAM, ONCE A DAY (60 MG, DAILY)
     Route: 065
     Dates: start: 2016
  11. PREDNISONE [Suspect]
     Active Substance: PREDNISONE
     Indication: Dermatomyositis
     Dosage: 10 MILLIGRAM, ONCE A DAY (10 MG, DAILY)
     Route: 065
     Dates: start: 2020
  12. TRIAMCINOLONE [Suspect]
     Active Substance: TRIAMCINOLONE
     Indication: Dermatomyositis
     Dosage: 4 MILLIGRAM, ONCE A DAY (4 MG, DAILY)
     Route: 065
     Dates: start: 2020

REACTIONS (13)
  - Hypertension [Unknown]
  - Interstitial lung disease [Unknown]
  - Type V hyperlipidaemia [Unknown]
  - Secondary adrenocortical insufficiency [Unknown]
  - Osteoporosis [Unknown]
  - Varicose vein [Unknown]
  - Muscular weakness [Unknown]
  - Skin exfoliation [Unknown]
  - Skin disorder [Unknown]
  - Petechiae [Unknown]
  - Muscle contracture [Unknown]
  - Erythema [Unknown]
  - Oedema peripheral [Unknown]
